FAERS Safety Report 4354859-7 (Version None)
Quarter: 2004Q2

REPORT INFORMATION
  Report Type: 
  Country: None (occurrence: None)
  Receive Date: 20040507
  Receipt Date: 20040430
  Transmission Date: 20050107
  Serious: Yes (Hospitalization)
  Sender: FDA-Public Use
  Company Number: CH-BRISTOL-MYERS SQUIBB COMPANY-12576450

PATIENT
  Age: 42 Year
  Sex: Male
  Weight: 65 kg

DRUGS (15)
  1. ETOPOPHOS [Suspect]
     Indication: LYMPHOMA
     Dosage: THERAPY DATES: 31-MAR TO 02-APR-2004
     Route: 042
     Dates: start: 20040331, end: 20040331
  2. CYTOSAR-U [Suspect]
     Indication: LYMPHOMA
     Dosage: THERAPY DATES: 31-MAR TO 02-APR-2004
     Route: 042
     Dates: start: 20040331, end: 20040331
  3. VIREAD [Suspect]
     Indication: ACQUIRED IMMUNODEFICIENCY SYNDROME
     Route: 048
  4. KALETRA [Suspect]
     Indication: ACQUIRED IMMUNODEFICIENCY SYNDROME
     Dosage: 532/132 MG
     Route: 048
  5. VIRAMUNE [Suspect]
     Indication: ACQUIRED IMMUNODEFICIENCY SYNDROME
     Route: 048
  6. CARMUSTINE [Concomitant]
     Indication: LYMPHOMA
     Dates: start: 20040330, end: 20040330
  7. ONDANSETRON HCL [Concomitant]
     Indication: NAUSEA
     Dates: start: 20040330, end: 20040402
  8. METHYLPREDNISOLONE [Concomitant]
     Indication: NAUSEA
     Dates: start: 20040330, end: 20040402
  9. FUROSEMIDE [Concomitant]
     Dates: start: 20040401, end: 20040402
  10. TRAMADOL HCL [Concomitant]
     Indication: MYALGIA
     Dates: start: 20040401
  11. ACETAMINOPHEN [Concomitant]
     Indication: PAIN
     Dates: start: 20040330, end: 20040331
  12. FLURAZEPAM [Concomitant]
     Dates: start: 20040329
  13. ALPRAZOLAM [Concomitant]
     Indication: ANXIETY
     Dates: start: 20040329
  14. NADROPARINE [Concomitant]
     Indication: THROMBOSIS PROPHYLAXIS
     Dates: start: 20040330
  15. ESOMEPRAZOLE [Concomitant]

REACTIONS (1)
  - PARESIS [None]
